FAERS Safety Report 7893200-X (Version None)
Quarter: 2011Q4

REPORT INFORMATION
  Report Type: 
  Country: None (occurrence: None)
  Receive Date: 20111104
  Receipt Date: 20111025
  Transmission Date: 20120403
  Serious: Yes (Other)
  Sender: FDA-Public Use
  Company Number: PHBS2007US21899

PATIENT
  Sex: Female

DRUGS (3)
  1. DRUG USED IN DIABETES [Concomitant]
  2. EXJADE [Suspect]
     Indication: IRON OVERLOAD
  3. EXJADE [Suspect]
     Indication: HAEMOCHROMATOSIS
     Dosage: 500 MG, UNK
     Dates: start: 20070101

REACTIONS (3)
  - HEPATIC CIRRHOSIS [None]
  - DIARRHOEA [None]
  - DRUG INEFFECTIVE [None]
